FAERS Safety Report 10521410 (Version 1)
Quarter: 2014Q4

REPORT INFORMATION
  Report Type: Spontaneous
  Country: US (occurrence: None)
  Receive Date: 20141014
  Receipt Date: 20141014
  Transmission Date: 20150528
  Serious: Yes (Life-Threatening)
  Sender: FDA-Public Use
  Company Number: None

PATIENT
  Age: 78 Year
  Sex: Male
  Weight: 75.3 kg

DRUGS (1)
  1. PRALATREXATE [Suspect]
     Active Substance: PRALATREXATE
     Indication: PERIPHERAL T-CELL LYMPHOMA UNSPECIFIED
     Route: 042
     Dates: start: 20140603, end: 20140722

REACTIONS (6)
  - Pancytopenia [None]
  - Stevens-Johnson syndrome [None]
  - Drug eruption [None]
  - Mucosal inflammation [None]
  - Paraneoplastic pemphigus [None]
  - Erythema multiforme [None]

NARRATIVE: CASE EVENT DATE: 20140704
